FAERS Safety Report 5152021-1 (Version None)
Quarter: 2006Q4

REPORT INFORMATION
  Report Type: 
  Country: None (occurrence: None)
  Receive Date: 20061116
  Receipt Date: 20060307
  Transmission Date: 20070319
  Serious: Yes (Death, Hospitalization)
  Sender: FDA-Public Use
  Company Number: US-ELI_LILLY_AND_COMPANY-US200603002479

PATIENT
  Age: 60 Year
  Sex: Male
  Weight: 104.76 kg

DRUGS (3)
  1. XANAX                                   /USA/ [Concomitant]
     Dosage: UNK, UNKNOWN
     Dates: start: 20050101
  2. LASIX [Concomitant]
     Dosage: UNK, UNKNOWN
     Dates: start: 20050101
  3. ZYPREXA [Suspect]
     Dosage: UNK, UNKNOWN
     Route: 048
     Dates: start: 20050901

REACTIONS (4)
  - CONDITION AGGRAVATED [None]
  - DEATH [None]
  - DIABETES MELLITUS [None]
  - LUNG NEOPLASM MALIGNANT [None]
